FAERS Safety Report 4829416-6 (Version None)
Quarter: 2005Q4

REPORT INFORMATION
  Report Type: 
  Country: None (occurrence: None)
  Receive Date: 20051116
  Receipt Date: 20050923
  Transmission Date: 20060501
  Serious: Yes (Hospitalization)
  Sender: FDA-Public Use
  Company Number: US-MERCK-0509USA03834

PATIENT
  Age: 76 Year
  Sex: Male
  Weight: 85 kg

DRUGS (25)
  1. VIOXX [Suspect]
     Indication: SPINAL OSTEOARTHRITIS
     Route: 048
     Dates: start: 20000328, end: 20010101
  2. TOPROL-XL [Concomitant]
     Route: 065
  3. BAYCOL [Concomitant]
     Route: 065
  4. ZOFRAN [Concomitant]
     Route: 065
  5. ALTACE [Concomitant]
     Route: 065
  6. LASIX [Concomitant]
     Route: 065
  7. K-DUR 10 [Concomitant]
     Route: 065
  8. ASPIRIN [Concomitant]
     Route: 065
  9. ZOCOR [Concomitant]
     Route: 065
  10. ZITHROMAX [Concomitant]
     Route: 065
  11. KLOR-CON [Concomitant]
     Route: 065
  12. NORVASC [Concomitant]
     Route: 065
  13. DIGOXIN [Concomitant]
     Route: 065
  14. COREG [Concomitant]
     Route: 065
  15. HYZAAR [Concomitant]
     Route: 065
  16. SILTUSSIN (GUAIFENESIN) [Concomitant]
     Route: 065
  17. RANITIDINE-BC [Concomitant]
     Route: 065
  18. NITROQUICK [Concomitant]
     Route: 065
  19. FLEXEN (ORPHENADRINE CITRATE) [Concomitant]
     Route: 065
  20. GNC GLUCOSAMINE CHONDROTIN [Concomitant]
     Route: 065
  21. VITAMIN E [Concomitant]
     Route: 065
  22. VITAMIN B COMPLEX [Concomitant]
     Route: 065
  23. ASCORBIC ACID [Concomitant]
     Route: 065
  24. GINKGO BILOBA FORTE [Concomitant]
     Route: 065
  25. PROPOXYPHENE HYDROCHLORIDE [Concomitant]
     Route: 065

REACTIONS (1)
  - MYOCARDIAL INFARCTION [None]
